FAERS Safety Report 18781527 (Version 1)
Quarter: 2021Q1

REPORT INFORMATION
  Report Type: Spontaneous
  Country: US (occurrence: US)
  Receive Date: 20210123
  Receipt Date: 20210123
  Transmission Date: 20210419
  Serious: Yes (Hospitalization)
  Sender: FDA-Public Use
  Company Number: None

PATIENT
  Age: 73 Year
  Sex: Female
  Weight: 75.7 kg

DRUGS (2)
  1. CARBOPLATIN. [Suspect]
     Active Substance: CARBOPLATIN
     Dates: end: 20201112
  2. TAXOL [Suspect]
     Active Substance: PACLITAXEL
     Dates: end: 20201112

REACTIONS (3)
  - Asthenia [None]
  - Type 2 diabetes mellitus [None]
  - Blood glucose increased [None]

NARRATIVE: CASE EVENT DATE: 20210115
